FAERS Safety Report 9864349 (Version 1)
Quarter: 2014Q1

REPORT INFORMATION
  Report Type: Report from Study
  Country: US (occurrence: US)
  Receive Date: 20140203
  Receipt Date: 20140203
  Transmission Date: 20141002
  Serious: Yes (Hospitalization, Other)
  Sender: FDA-Public Use
  Company Number: US-ABBVIE-14P-163-1194287-00

PATIENT
  Age: 68 Year
  Sex: Male
  Weight: 76.27 kg

DRUGS (1)
  1. HUMIRA [Suspect]
     Indication: CROHN^S DISEASE
     Route: 058
     Dates: start: 201106, end: 201212

REACTIONS (7)
  - Vomiting [Recovered/Resolved]
  - Crohn^s disease [Not Recovered/Not Resolved]
  - Vomiting [Recovered/Resolved]
  - Diarrhoea [Recovered/Resolved]
  - Device failure [Recovered/Resolved]
  - Drug ineffective [Not Recovered/Not Resolved]
  - Colostomy [Unknown]
